FAERS Safety Report 7217159-3 (Version None)
Quarter: 2011Q1

REPORT INFORMATION
  Report Type: 
  Country: None (occurrence: None)
  Receive Date: 20110110
  Receipt Date: 20101228
  Transmission Date: 20110831
  Serious: Yes (Death, Hospitalization)
  Sender: FDA-Public Use
  Company Number: FR-PFIZER INC-FR-WYE-G00444207

PATIENT
  Age: 86 Year
  Sex: Male

DRUGS (6)
  1. CIFLOX [Suspect]
     Indication: ERYSIPELAS
     Dosage: 500.0 MG, 2X/DAY
     Route: 048
     Dates: start: 20070808, end: 20070822
  2. PENICILLIN G [Suspect]
     Indication: ERYSIPELAS
     Dosage: UNK
     Route: 065
     Dates: start: 20070730
  3. TAZOCILLINE [Suspect]
     Indication: ERYSIPELAS
     Dosage: UNK
     Route: 042
     Dates: start: 20070808, end: 20070822
  4. ZYVOX [Suspect]
     Indication: ERYSIPELAS
     Dosage: 600 MG; UNK
     Route: 048
     Dates: start: 20070808, end: 20070822
  5. COLCHIMAX [Suspect]
     Indication: CHONDROCALCINOSIS
     Dosage: UNK
     Route: 048
     Dates: start: 20070812, end: 20070822
  6. LOVENOX [Suspect]
     Dosage: 4000 IU TOTAL DAILY
     Route: 065
     Dates: start: 20070730, end: 20070905

REACTIONS (3)
  - PANCYTOPENIA [None]
  - PYREXIA [None]
  - INTESTINAL ISCHAEMIA [None]
